FAERS Safety Report 5121980-5 (Version None)
Quarter: 2006Q4

REPORT INFORMATION
  Report Type: 
  Country: None (occurrence: None)
  Receive Date: 20061003
  Receipt Date: 20060926
  Transmission Date: 20070319
  Serious: Yes (Hospitalization)
  Sender: FDA-Public Use
  Company Number: 2006BI010653

PATIENT
  Age: 54 Year
  Sex: Female

DRUGS (5)
  1. AVONEX [Suspect]
     Indication: MULTIPLE SCLEROSIS
     Dosage: 30 UG; QW; IM
     Route: 030
     Dates: start: 20040301
  2. MERICOMB [Concomitant]
  3. OPIPRAMOLE [Concomitant]
  4. PARAFFIN [Concomitant]
  5. DICLOFENAC SODIUM [Concomitant]

REACTIONS (1)
  - BREAST CANCER IN SITU [None]
